FAERS Safety Report 10378718 (Version 1)
Quarter: 2014Q3

REPORT INFORMATION
  Report Type: Spontaneous
  Country: US (occurrence: None)
  Receive Date: 20140811
  Receipt Date: 20140811
  Transmission Date: 20150326
  Serious: Yes (Hospitalization)
  Sender: FDA-Public Use
  Company Number: None

PATIENT
  Age: 37 Year
  Sex: Female
  Weight: 127.92 kg

DRUGS (1)
  1. AUGMENTIN [Suspect]
     Active Substance: AMOXICILLIN\CLAVULANATE POTASSIUM
     Dosage: 1 TABLET TWICE DAILY TAKEN BY MOUTH
     Route: 048

REACTIONS (7)
  - Abasia [None]
  - Unevaluable event [None]
  - Swelling [None]
  - Pruritus [None]
  - Eyelid oedema [None]
  - Swelling face [None]
  - Bone pain [None]

NARRATIVE: CASE EVENT DATE: 20130927
